APPROVED DRUG PRODUCT: ERYTHROMYCIN
Active Ingredient: ERYTHROMYCIN
Strength: 2%
Dosage Form/Route: SOLUTION;TOPICAL
Application: A208100 | Product #001
Applicant: PAI HOLDINGS LLC DBA PHARMACEUTICAL ASSOCIATES INC
Approved: Nov 20, 2017 | RLD: No | RS: No | Type: DISCN